FAERS Safety Report 13203679 (Version 4)
Quarter: 2017Q2

REPORT INFORMATION
  Report Type: Report from Study
  Country: US (occurrence: US)
  Receive Date: 20170209
  Receipt Date: 20170417
  Transmission Date: 20170830
  Serious: Yes (Other)
  Sender: FDA-Public Use
  Company Number: US-PFIZER INC-2017035140

PATIENT
  Age: 73 Year
  Sex: Female

DRUGS (2)
  1. IBRANCE [Suspect]
     Active Substance: PALBOCICLIB
     Indication: BREAST CANCER
     Dosage: 75 MG, CYCLIC (DAILY: 3 WEEKS ON/1 WEEK OFF)
     Route: 048
     Dates: start: 20170111, end: 20170131
  2. IBRANCE [Suspect]
     Active Substance: PALBOCICLIB
     Dosage: 75 MG, CYCLIC (DAILY: 3 WEEKS ON/1 WEEK OFF)
     Route: 048
     Dates: start: 20170214, end: 20170301

REACTIONS (12)
  - Full blood count abnormal [Not Recovered/Not Resolved]
  - Alopecia [Unknown]
  - White blood cell count decreased [Unknown]
  - Asthenia [Unknown]
  - Nausea [Unknown]
  - Constipation [Unknown]
  - Headache [Unknown]
  - Bone marrow failure [Unknown]
  - Neoplasm progression [Unknown]
  - Fatigue [Not Recovered/Not Resolved]
  - Decreased appetite [Not Recovered/Not Resolved]
  - Muscular weakness [Not Recovered/Not Resolved]
